FAERS Safety Report 17025442 (Version 1)
Quarter: 2019Q4

REPORT INFORMATION
  Report Type: Spontaneous
  Country: US (occurrence: US)
  Receive Date: 20191008
  Receipt Date: 20191008
  Transmission Date: 20200122
  Serious: No
  Sender: FDA-Public Use
  Company Number: None

PATIENT
  Age: 70 Year
  Sex: Male
  Weight: 106.6 kg

DRUGS (1)
  1. PRAVASTATIN. [Suspect]
     Active Substance: PRAVASTATIN
     Indication: BLOOD CHOLESTEROL INCREASED
     Dates: start: 20100101, end: 20190825

REACTIONS (5)
  - Therapy change [None]
  - Weight decreased [None]
  - Muscle atrophy [None]
  - Pain in extremity [None]
  - Gait inability [None]

NARRATIVE: CASE EVENT DATE: 20190120
